FAERS Safety Report 6911370-4 (Version None)
Quarter: 2010Q3

REPORT INFORMATION
  Report Type: 
  Country: None (occurrence: None)
  Receive Date: 20100806
  Receipt Date: 20100730
  Transmission Date: 20110219
  Serious: Yes (Hospitalization)
  Sender: FDA-Public Use
  Company Number: US-JNJFOC-20100800518

PATIENT
  Sex: Male

DRUGS (7)
  1. RISPERDAL [Suspect]
     Indication: AGGRESSION
     Route: 048
  2. METHADONE HCL [Concomitant]
     Indication: PAIN
     Route: 048
  3. KLONOPIN [Concomitant]
     Route: 048
  4. VENTOLIN [Concomitant]
     Indication: CHRONIC OBSTRUCTIVE PULMONARY DISEASE
     Route: 055
  5. ZOLOFT [Concomitant]
     Route: 048
  6. NEXIUM [Concomitant]
     Indication: GASTROOESOPHAGEAL REFLUX DISEASE
     Route: 048
  7. SYMBICORT [Concomitant]
     Indication: CHRONIC OBSTRUCTIVE PULMONARY DISEASE
     Route: 055

REACTIONS (7)
  - CHRONIC OBSTRUCTIVE PULMONARY DISEASE [None]
  - CONFUSIONAL STATE [None]
  - HAEMATEMESIS [None]
  - IRRITABLE BOWEL SYNDROME [None]
  - PYREXIA [None]
  - TREATMENT NONCOMPLIANCE [None]
  - VISION BLURRED [None]
